FAERS Safety Report 6022027-9 (Version None)
Quarter: 2008Q4

REPORT INFORMATION
  Report Type: 
  Country: None (occurrence: None)
  Receive Date: 20081223
  Receipt Date: 20081211
  Transmission Date: 20090506
  Serious: Yes (Hospitalization)
  Sender: FDA-Public Use
  Company Number: 2008S1019104

PATIENT
  Age: 88 Year
  Sex: Male
  Weight: 54.4316 kg

DRUGS (9)
  1. INVESTIGATIONAL DRUG [Suspect]
     Indication: MACULAR DEGENERATION
     Dosage: SEE IMAGE
     Route: 031
     Dates: start: 20070224, end: 20080116
  2. INVESTIGATIONAL DRUG [Suspect]
     Indication: MACULAR DEGENERATION
     Dosage: SEE IMAGE
     Route: 031
     Dates: start: 20080416
  3. INVESTIGATIONAL DRUG [Suspect]
  4. BENAZEPRIL HYDROCHLORIDE [Suspect]
     Indication: HYPERTENSION
     Dosage: 10 MG;3 TIMES A DAY; ORAL
     Route: 048
     Dates: start: 20080613, end: 20080926
  5. CELEBREX [Concomitant]
  6. ACETAMINOPHEN [Concomitant]
  7. FLUNISOLIDE [Concomitant]
  8. TRAMADOL [Concomitant]
  9. HYDROCODONE [Concomitant]

REACTIONS (7)
  - CAROTID ARTERY STENOSIS [None]
  - CEREBRAL ATROPHY [None]
  - FALL [None]
  - HYPOTENSION [None]
  - SYNCOPE [None]
  - TRANSIENT ISCHAEMIC ATTACK [None]
  - VASCULAR CALCIFICATION [None]
